FAERS Safety Report 7411603-4 (Version None)
Quarter: 2011Q2

REPORT INFORMATION
  Report Type: 
  Country: None (occurrence: None)
  Receive Date: 20110413
  Receipt Date: 20100921
  Transmission Date: 20111010
  Serious: No
  Sender: FDA-Public Use
  Company Number: PR-BRISTOL-MYERS SQUIBB COMPANY-15299282

PATIENT
  Age: 57 Year
  Sex: Male

DRUGS (4)
  1. BENADRYL [Concomitant]
     Dosage: STARTED IN JUNE
     Route: 042
  2. DECADRON [Concomitant]
     Dosage: STARTED IN JUNE
     Route: 042
  3. ERBITUX [Suspect]
     Dosage: DOSAGE FORM:LIQUID
     Dates: start: 20100601
  4. ACETAMINOPHEN [Concomitant]
     Route: 048

REACTIONS (2)
  - HYPERTRICHOSIS [None]
  - HAIR COLOUR CHANGES [None]
